FAERS Safety Report 7681371-X (Version None)
Quarter: 2011Q3

REPORT INFORMATION
  Report Type: 
  Country: None (occurrence: None)
  Receive Date: 20110812
  Receipt Date: 20110728
  Transmission Date: 20111222
  Serious: Yes (Other)
  Sender: FDA-Public Use
  Company Number: PHFR2011GB03836

PATIENT
  Sex: Female
  Weight: 57 kg

DRUGS (3)
  1. VALPROATE SODIUM [Concomitant]
     Indication: EPILEPSY
     Dosage: 300 MG/DAY
  2. ALENDRONIC ACID [Concomitant]
     Indication: OSTEOPOROSIS
     Dosage: 70 MG, UNK
     Route: 048
  3. TEGRETOL [Suspect]
     Indication: EPILEPSY
     Dosage: 200 MG, BID
     Route: 065
     Dates: start: 20110617, end: 20110628

REACTIONS (4)
  - FATIGUE [None]
  - SOMNOLENCE [None]
  - AMNESIA [None]
  - CONFUSIONAL STATE [None]
